FAERS Safety Report 9447371 (Version 1)
Quarter: 2013Q3

REPORT INFORMATION
  Report Type: Spontaneous
  Country: ES (occurrence: ES)
  Receive Date: 20130808
  Receipt Date: 20130808
  Transmission Date: 20140515
  Serious: Yes (Other)
  Sender: FDA-Public Use
  Company Number: ES-MERCK-1308ESP002139

PATIENT
  Age: 47 Year
  Sex: Female

DRUGS (4)
  1. EZETROL 10 MG COMPRIMIDOS [Suspect]
     Indication: HYPERLIPIDAEMIA
     Route: 048
     Dates: start: 20130508, end: 20130708
  2. GEMFIBROZIL [Concomitant]
     Dosage: UNK UNK, Q12H
     Dates: start: 20120516
  3. OMEPRAZOLE [Concomitant]
     Dosage: UNK UNK, Q24H
     Dates: start: 20130418
  4. LEXATIN [Concomitant]
     Dates: start: 20130418

REACTIONS (1)
  - Neutropenia [Recovered/Resolved]
